FAERS Safety Report 8966698 (Version 1)
Quarter: 2012Q4

REPORT INFORMATION
  Report Type: Spontaneous
  Country: GB (occurrence: None)
  Receive Date: 20121206
  Receipt Date: 20121206
  Transmission Date: 20130627
  Serious: Yes (Other)
  Sender: FDA-Public Use
  Company Number: EUS-2012-00937

PATIENT
  Age: 16 Year
  Sex: Female

DRUGS (3)
  1. ASPARAGINASE [Suspect]
     Indication: ACUTE LYMPHOCYTIC LEUKAEMIA
     Dates: start: 19871020, end: 19871021
  2. ASPARAGINASE [Suspect]
     Indication: ACUTE LYMPHOCYTIC LEUKAEMIA
     Dates: start: 19871022, end: 19871026
  3. GABEXATE MESILATE [Concomitant]

REACTIONS (8)
  - Pancreatitis acute [None]
  - Disseminated intravascular coagulation [None]
  - Pancreatic pseudocyst [None]
  - Face oedema [None]
  - Oedema peripheral [None]
  - Pleural effusion [None]
  - Ileus [None]
  - Ascites [None]
